FAERS Safety Report 8976077 (Version 1)
Quarter: 2012Q4

REPORT INFORMATION
  Report Type: 
  Country: AT (occurrence: AT)
  Receive Date: 20121220
  Receipt Date: 20121220
  Transmission Date: 20130627
  Serious: Yes (Hospitalization)
  Sender: FDA-Public Use
  Company Number: AT-PFIZER INC-AT-WYE-H09845709

PATIENT
  Age: 69 Year
  Sex: Female

DRUGS (44)
  1. SIROLIMUS [Suspect]
     Indication: PROPHYLAXIS AGAINST TRANSPLANT REJECTION
     Dosage: 1 mg, 1x/day
     Route: 048
     Dates: start: 20030924, end: 20030930
  2. SIROLIMUS [Suspect]
     Dosage: 1 mg, 1x/day
     Route: 048
     Dates: start: 20031001, end: 20031218
  3. SIROLIMUS [Suspect]
     Dosage: 1 mg, alternate day
     Route: 048
     Dates: start: 20031219, end: 20031228
  4. SIROLIMUS [Suspect]
     Dosage: 1 mg, 1x/day
     Route: 048
     Dates: start: 20031229, end: 20050404
  5. SIROLIMUS [Suspect]
     Dosage: 3 mg, 4x/day
     Dates: start: 20050623, end: 20051003
  6. METHYLPREDNISOLONE SODIUM SUCCINATE [Suspect]
     Indication: PROPHYLAXIS AGAINST TRANSPLANT REJECTION
     Dosage: 500 mg, single
     Route: 042
     Dates: start: 20030924
  7. METHYLPREDNISOLONE SODIUM SUCCINATE [Suspect]
     Dosage: 125 mg, single
     Route: 042
     Dates: start: 20030925
  8. DACLIZUMAB [Suspect]
     Indication: PROPHYLAXIS AGAINST TRANSPLANT REJECTION
     Dosage: 100 mg, single
     Route: 042
     Dates: start: 20030924
  9. DACLIZUMAB [Suspect]
     Dosage: 50 mg, every two weeks
     Route: 042
     Dates: start: 20031008
  10. MYCOPHENOLATE MOFETIL [Suspect]
     Indication: PROPHYLAXIS AGAINST TRANSPLANT REJECTION
     Dosage: 1 g, 1x/day
     Route: 048
     Dates: start: 20030924, end: 20030924
  11. MYCOPHENOLATE MOFETIL [Suspect]
     Dosage: 1 g, 2x/day
     Route: 048
     Dates: start: 20030925, end: 20030928
  12. MYCOPHENOLATE MOFETIL [Suspect]
     Dosage: 0.75 g, 2x/day
     Route: 048
     Dates: start: 20030929, end: 20030929
  13. MYCOPHENOLATE MOFETIL [Suspect]
     Dosage: 0.5 g, 1x/day
     Route: 048
     Dates: start: 20030930, end: 20031001
  14. MYCOPHENOLATE MOFETIL [Suspect]
     Dosage: 0.5 g, 2x/day
     Route: 048
     Dates: start: 20031002, end: 20031005
  15. MYCOPHENOLATE MOFETIL [Suspect]
     Dosage: 0.5 g, 3x/day
     Route: 048
     Dates: start: 20031006, end: 20031014
  16. MYCOPHENOLATE MOFETIL [Suspect]
     Dosage: 1 g, 2x/day
     Route: 048
     Dates: start: 20031015, end: 20031204
  17. MYCOPHENOLATE MOFETIL [Suspect]
     Dosage: 0.5 g, 2x/day
     Route: 048
     Dates: start: 20031205, end: 20031211
  18. MYCOPHENOLATE MOFETIL [Suspect]
     Dosage: 1 g, 2x/day
     Route: 048
     Dates: start: 20031212, end: 20040104
  19. MYCOPHENOLATE MOFETIL [Suspect]
     Dosage: 0.75 mg, 2x/day
     Route: 048
     Dates: start: 20040105, end: 20040118
  20. MYCOPHENOLATE MOFETIL [Suspect]
     Dosage: 0.5 mg, 2x/day
     Route: 048
     Dates: start: 20040119, end: 20040123
  21. PREDNISOLONE [Suspect]
     Indication: PROPHYLAXIS AGAINST TRANSPLANT REJECTION
     Dosage: 5 mg, 1x/day
     Route: 048
     Dates: start: 20030926
  22. TACROLIMUS [Suspect]
     Indication: PROPHYLAXIS AGAINST TRANSPLANT REJECTION
     Dosage: 1.5 mg, 2x/day
     Route: 048
     Dates: start: 20050404, end: 20050623
  23. TACROLIMUS [Suspect]
     Dosage: 1 mg, 2x/day
     Route: 048
     Dates: start: 20051003
  24. AMLODIPINE [Concomitant]
     Dosage: 5 mg, 1x/day
     Route: 048
     Dates: start: 20030925, end: 20031205
  25. AMLODIPINE [Concomitant]
     Dosage: 5 mg, 1x/day
     Route: 048
     Dates: start: 20040105, end: 20040803
  26. AMLODIPINE [Concomitant]
     Dosage: 10 mg, 1x/day
     Route: 048
     Dates: start: 20040804, end: 20041111
  27. AMLODIPINE [Concomitant]
     Dosage: 5 mg, 1x/day
     Route: 048
     Dates: start: 20041112, end: 20060606
  28. CARVEDILOL [Concomitant]
     Dosage: 25 mg, 1x/day
     Route: 048
     Dates: start: 20030925, end: 20040104
  29. CARVEDILOL [Concomitant]
     Dosage: 25 mg, 1x/day
     Route: 048
     Dates: start: 20040105, end: 20051002
  30. CARVEDILOL [Concomitant]
     Dosage: 25 mg, 1x/day
     Route: 048
     Dates: start: 20051003
  31. FLUCLOXACILLIN [Concomitant]
     Dosage: 4 g, 2x/day
     Route: 048
     Dates: start: 20030924
  32. GANCICLOVIR [Concomitant]
     Dosage: 125 mg, 2x/day
     Route: 042
     Dates: start: 20031212, end: 20031217
  33. THYREX [Concomitant]
     Dosage: 100 mg, 1x/day
     Route: 048
     Dates: start: 200311
  34. METOPROLOL [Concomitant]
     Dosage: 5 mg, single
     Route: 042
     Dates: start: 20030925
  35. MOXONIDINE [Concomitant]
     Dosage: 0.4 mg, 1x/day
     Route: 048
     Dates: start: 20031001
  36. NITRENDIPINE [Concomitant]
     Dosage: 10 mg, single
     Route: 048
     Dates: start: 20030930
  37. PANTOLOC [Concomitant]
     Dosage: 40 mg, 1x/day
     Route: 065
     Dates: start: 200310
  38. PENICILLIN NOS [Concomitant]
     Dosage: 6 g, single
     Route: 042
     Dates: start: 20030924
  39. SIMVASTATIN [Concomitant]
     Dosage: 40 mg, 1x/day
     Route: 048
     Dates: start: 20031117, end: 20040804
  40. CO-TRIMOXAZOLE [Concomitant]
     Dosage: 1 g, alternate day
     Route: 048
     Dates: start: 20030926, end: 20040407
  41. FLUVASTATIN [Concomitant]
     Dosage: 80 mg, 1x/day
     Route: 048
     Dates: start: 20040804, end: 20040901
  42. FLUVASTATIN [Concomitant]
     Dosage: 80 mg, 1x/day
     Route: 048
     Dates: start: 20050623
  43. VALGANCICLOVIR HYDROCHLORIDE [Concomitant]
     Dosage: 450 mg, 2x/day
     Route: 048
     Dates: start: 20031219, end: 20040201
  44. VALGANCICLOVIR HYDROCHLORIDE [Concomitant]
     Dosage: 450 mg, 1x/day
     Route: 048
     Dates: start: 20040202, end: 20040407

REACTIONS (5)
  - Cytomegalovirus infection [Recovered/Resolved]
  - Blood creatinine increased [Recovered/Resolved]
  - Hyponatraemia [Recovered/Resolved]
  - Hypokalaemia [Recovered/Resolved]
  - Anaemia [Recovered/Resolved]
